FAERS Safety Report 10238060 (Version 2)
Quarter: 2014Q2

REPORT INFORMATION
  Report Type: Spontaneous
  Country: US (occurrence: US)
  Receive Date: 20140616
  Receipt Date: 20140630
  Transmission Date: 20141212
  Serious: Yes (Other)
  Sender: FDA-Public Use
  Company Number: US-JNJFOC-20140602332

PATIENT
  Sex: Female
  Weight: 44.45 kg

DRUGS (2)
  1. DURAGESIC [Suspect]
     Indication: PAIN
     Route: 062
     Dates: start: 2010, end: 2012
  2. FENTANYL TRANSDERMAL SYSTEM [Suspect]
     Indication: PAIN
     Route: 062
     Dates: start: 2010, end: 2012

REACTIONS (7)
  - Respiratory distress [Recovered/Resolved]
  - Wrong technique in drug usage process [Recovered/Resolved]
  - Influenza [Recovered/Resolved]
  - Pyrexia [Recovered/Resolved]
  - Incorrect drug administration rate [Recovered/Resolved]
  - Application site vesicles [Recovered/Resolved]
  - Product quality issue [Unknown]
